FAERS Safety Report 17929227 (Version 1)
Quarter: 2020Q2

REPORT INFORMATION
  Report Type: Report from Study
  Country: FR (occurrence: FR)
  Receive Date: 20200623
  Receipt Date: 20200623
  Transmission Date: 20200714
  Serious: Yes (Other)
  Sender: FDA-Public Use
  Company Number: FR-AMERICAN REGENT INC-2020001285

PATIENT
  Sex: Female

DRUGS (3)
  1. FERINJECT [Suspect]
     Active Substance: FERRIC CARBOXYMALTOSE
     Indication: MINERAL SUPPLEMENTATION
     Dosage: UNK
     Route: 042
  2. VENOFER [Suspect]
     Active Substance: IRON SUCROSE
     Indication: MINERAL SUPPLEMENTATION
     Dosage: UNK
     Route: 042
  3. LEVOTHYROX [Suspect]
     Active Substance: LEVOTHYROXINE
     Indication: THYROID DISORDER
     Dosage: UNK, NEW FORMULATION
     Route: 065

REACTIONS (15)
  - Tympanic membrane disorder [Unknown]
  - Trigeminal neuralgia [Not Recovered/Not Resolved]
  - Intervertebral disc disorder [Unknown]
  - Headache [Not Recovered/Not Resolved]
  - Nervous system disorder [Unknown]
  - Panic attack [Unknown]
  - Muscle contracture [Unknown]
  - Occipital neuralgia [Not Recovered/Not Resolved]
  - Feeling drunk [Recovering/Resolving]
  - Insomnia [Unknown]
  - Drug interaction [Unknown]
  - Accommodation disorder [Unknown]
  - Basedow^s disease [Unknown]
  - Tetany [Unknown]
  - Muscle spasms [Unknown]
